FAERS Safety Report 9285312 (Version 1)
Quarter: 2013Q2

REPORT INFORMATION
  Report Type: Spontaneous
  Country: US (occurrence: US)
  Receive Date: 20130513
  Receipt Date: 20130513
  Transmission Date: 20140414
  Serious: Yes (Other)
  Sender: FDA-Public Use
  Company Number: US-OTSUKA-US-2013-10573

PATIENT
  Age: 88 Year
  Sex: Male

DRUGS (2)
  1. SAMSCA [Suspect]
     Indication: HYPONATRAEMIA
     Dosage: UNK UNK, UNKNOWN
     Route: 065
     Dates: start: 201303, end: 20130322
  2. CELEXA [Concomitant]
     Dosage: UNK
     Dates: end: 20130322

REACTIONS (4)
  - Blood sodium decreased [Unknown]
  - Confusional state [Unknown]
  - Asthenia [Unknown]
  - Drug administration error [Unknown]
